FAERS Safety Report 6391459-1 (Version None)
Quarter: 2009Q4

REPORT INFORMATION
  Report Type: 
  Country: None (occurrence: None)
  Receive Date: 20091007
  Receipt Date: 20090928
  Transmission Date: 20100525
  Serious: Yes (Hospitalization)
  Sender: FDA-Public Use
  Company Number: FR-ASTRAZENECA-2009SE17046

PATIENT
  Age: 879 Month
  Sex: Male

DRUGS (2)
  1. ZOLADEX [Suspect]
     Indication: PROSTATE CANCER
     Route: 058
     Dates: start: 20080801, end: 20080101
  2. CASODEX [Suspect]
     Indication: ANTIANDROGEN THERAPY
     Route: 048
     Dates: start: 20080801, end: 20080901

REACTIONS (1)
  - HEPATITIS FULMINANT [None]
